FAERS Safety Report 12545644 (Version 2)
Quarter: 2016Q3

REPORT INFORMATION
  Report Type: Report from Study
  Country: US (occurrence: US)
  Receive Date: 20160711
  Receipt Date: 20160727
  Transmission Date: 20161109
  Serious: Yes (Life-Threatening, Hospitalization, Other)
  Sender: FDA-Public Use
  Company Number: US-MALLINCKRODT-T201602787

PATIENT
  Age: 40 Year
  Sex: Male

DRUGS (1)
  1. REPOSITORY CORTICOTROPIN INJECTION [Suspect]
     Active Substance: CORTICOTROPIN
     Indication: SARCOIDOSIS
     Dosage: 40 UNITS/0.5 ML 2 TIMES PER WEEK
     Route: 058
     Dates: start: 20150629

REACTIONS (5)
  - Dyspnoea [Unknown]
  - Cardiac sarcoidosis [Not Recovered/Not Resolved]
  - Malaise [Unknown]
  - Cardiac arrest [Recovering/Resolving]
  - Ventricular dysfunction [Not Recovered/Not Resolved]

NARRATIVE: CASE EVENT DATE: 20160617
